FAERS Safety Report 7055621-7 (Version None)
Quarter: 2010Q4

REPORT INFORMATION
  Report Type: 
  Country: None (occurrence: None)
  Receive Date: 20101021
  Receipt Date: 20101013
  Transmission Date: 20110411
  Serious: Yes (Hospitalization)
  Sender: FDA-Public Use
  Company Number: DE-BAYER-201038247GPV

PATIENT
  Age: 70 Year
  Sex: Male
  Weight: 80 kg

DRUGS (14)
  1. NEXAVAR [Suspect]
     Indication: HEPATIC NEOPLASM MALIGNANT
     Dosage: TOTAL DAILY DOSE: 800 MG  UNIT DOSE: 200 MG
     Route: 048
     Dates: start: 20100615, end: 20100630
  2. NEXAVAR [Suspect]
     Dosage: UNIT DOSE: 200 MG
     Route: 048
     Dates: start: 20100707, end: 20100724
  3. NEXAVAR [Suspect]
     Dosage: UNIT DOSE: 200 MG
     Route: 048
     Dates: start: 20100804
  4. NEXAVAR [Suspect]
     Dosage: UNIT DOSE: 200 MG
     Route: 048
     Dates: start: 20100725, end: 20100728
  5. NEXAVAR [Suspect]
     Dates: start: 20100729, end: 20100803
  6. RAMIPRIL [Concomitant]
     Dosage: TOTAL DAILY DOSE: 2.5 MG
  7. PANTOPRAZOLE [Concomitant]
     Dosage: TOTAL DAILY DOSE: 40 MG
  8. ALLOPURINOL [Concomitant]
     Dosage: TOTAL DAILY DOSE: 300 MG
  9. SPIRONOLACTONE [Concomitant]
     Dosage: TOTAL DAILY DOSE: 50 MG
  10. TORASEMIDE [Concomitant]
  11. TORASEMIDE [Concomitant]
     Dosage: TOTAL DAILY DOSE: 5 MG  UNIT DOSE: 10 MG
  12. METFORMIN [Concomitant]
     Dosage: CURRENTLY PAUSED
  13. COLECALCIFEROLE [Concomitant]
     Dosage: 400 IU
  14. CALCIMAGON-D3 [Concomitant]
     Dosage: TOTAL DAILY DOSE: 1.25 MG

REACTIONS (4)
  - AGEUSIA [None]
  - ANOSMIA [None]
  - CONFUSIONAL STATE [None]
  - HEPATIC ENCEPHALOPATHY [None]
